FAERS Safety Report 11887748 (Version 2)
Quarter: 2016Q1

REPORT INFORMATION
  Report Type: Spontaneous
  Country: US (occurrence: US)
  Receive Date: 20160105
  Receipt Date: 20160219
  Transmission Date: 20160526
  Serious: No
  Sender: FDA-Public Use
  Company Number: US-ASTRAZENECA-2015SF29900

PATIENT
  Sex: Female
  Weight: 78 kg

DRUGS (1)
  1. SYMBICORT [Suspect]
     Active Substance: BUDESONIDE\FORMOTEROL FUMARATE DIHYDRATE
     Indication: CHRONIC OBSTRUCTIVE PULMONARY DISEASE
     Dosage: 160/4.5 MCG, 2 PUFFS IN THE MORNING AND 2 PUFFS IN THE EVENING
     Route: 055
     Dates: start: 2015

REACTIONS (8)
  - Device malfunction [Unknown]
  - Underdose [Unknown]
  - Dementia [Unknown]
  - Intentional device misuse [Unknown]
  - Memory impairment [Unknown]
  - Drug dose omission [Unknown]
  - Dyspnoea [Unknown]
  - Anxiety [Unknown]
